FAERS Safety Report 19567777 (Version 3)
Quarter: 2024Q3

REPORT INFORMATION
  Report Type: Spontaneous
  Country: US (occurrence: US)
  Receive Date: 20210714
  Receipt Date: 20240723
  Transmission Date: 20241017
  Serious: No
  Sender: NOVO NORDISK
  Company Number: US-NOVOPROD-790408

PATIENT
  Age: 69 Year
  Sex: Male

DRUGS (1)
  1. RYBELSUS [Suspect]
     Active Substance: SEMAGLUTIDE
     Indication: Product used for unknown indication
     Dosage: UNK
     Route: 048

REACTIONS (5)
  - Oropharyngeal discomfort [Unknown]
  - Abdominal discomfort [Unknown]
  - Dysgeusia [Unknown]
  - Product complaint [Unknown]
  - Inappropriate schedule of product administration [Recovered/Resolved]
